FAERS Safety Report 12802074 (Version 1)
Quarter: 2016Q4

REPORT INFORMATION
  Report Type: Spontaneous
  Country: US (occurrence: US)
  Receive Date: 20161003
  Receipt Date: 20161003
  Transmission Date: 20170207
  Serious: No
  Sender: FDA-Public Use
  Company Number: US-JAZZ-2016-US-012114

PATIENT
  Sex: Female

DRUGS (19)
  1. NUVIGIL [Concomitant]
     Active Substance: ARMODAFINIL
  2. EVENING PRIMROSE [Concomitant]
  3. VITAMIN E [Concomitant]
     Active Substance: .ALPHA.-TOCOPHEROL
  4. FOLIC ACID. [Concomitant]
     Active Substance: FOLIC ACID
  5. FIBER [Concomitant]
     Active Substance: PSYLLIUM HUSK
  6. XYREM [Suspect]
     Active Substance: SODIUM OXYBATE
     Indication: NARCOLEPSY
     Dosage: 2.25 G, BID
     Route: 048
     Dates: start: 201307, end: 2014
  7. IBUPROFEN. [Concomitant]
     Active Substance: IBUPROFEN
  8. XYREM [Suspect]
     Active Substance: SODIUM OXYBATE
     Indication: CATAPLEXY
     Dosage: 2.5 G, BID
     Route: 048
     Dates: start: 201507, end: 201601
  9. MULTIVITAMINS [Concomitant]
     Active Substance: VITAMINS
  10. XYREM [Suspect]
     Active Substance: SODIUM OXYBATE
     Dosage: 3.25 G, BID
     Route: 048
     Dates: start: 201601
  11. VITAMIN D3 [Concomitant]
     Active Substance: CHOLECALCIFEROL
  12. CHIA SEED [Concomitant]
  13. FLAXSEED [Concomitant]
     Active Substance: FLAX SEED
  14. MIDODRINE HCL [Concomitant]
     Active Substance: MIDODRINE HYDROCHLORIDE
  15. INDERAL [Concomitant]
     Active Substance: PROPRANOLOL HYDROCHLORIDE
  16. XYREM [Suspect]
     Active Substance: SODIUM OXYBATE
     Indication: NEUROPATHY PERIPHERAL
     Dosage: 2.5 G, BID
     Route: 048
     Dates: start: 201412
  17. TRAMADOL HCL [Concomitant]
     Active Substance: TRAMADOL HYDROCHLORIDE
  18. LEVOTHYROXINE. [Concomitant]
     Active Substance: LEVOTHYROXINE
  19. TOVIAZ [Concomitant]
     Active Substance: FESOTERODINE FUMARATE

REACTIONS (5)
  - Nausea [Not Recovered/Not Resolved]
  - Nocturia [Not Recovered/Not Resolved]
  - Dizziness [Not Recovered/Not Resolved]
  - Enuresis [Not Recovered/Not Resolved]
  - Fatigue [Not Recovered/Not Resolved]
